FAERS Safety Report 5445415-8 (Version None)
Quarter: 2007Q3

REPORT INFORMATION
  Report Type: 
  Country: None (occurrence: None)
  Receive Date: 20070906
  Receipt Date: 20070622
  Transmission Date: 20080115
  Serious: No
  Sender: FDA-Public Use
  Company Number: A0659666A

PATIENT
  Age: 64 Year
  Sex: Male

DRUGS (7)
  1. REQUIP [Suspect]
     Indication: RESTLESS LEGS SYNDROME
     Dosage: 1MG PER DAY
     Route: 048
  2. DURAGESIC-100 [Concomitant]
  3. RESTORIL [Concomitant]
  4. PRAVACHOL [Concomitant]
  5. FLOMAX [Concomitant]
  6. ACCUPRIL [Concomitant]
  7. PRAVACHOL [Concomitant]

REACTIONS (2)
  - DRUG INEFFECTIVE [None]
  - NAUSEA [None]
